FAERS Safety Report 11326831 (Version 1)
Quarter: 2015Q3

REPORT INFORMATION
  Report Type: Spontaneous
  Country: US (occurrence: None)
  Receive Date: 20150729
  Receipt Date: 20150729
  Transmission Date: 20151125
  Serious: No
  Sender: FDA-Public Use
  Company Number: None

PATIENT
  Age: 64 Year
  Sex: Female

DRUGS (9)
  1. VORICONAZOLE. [Suspect]
     Active Substance: VORICONAZOLE
     Indication: IMMUNOSUPPRESSION
     Route: 048
     Dates: start: 20150326
  2. SULFAMETHOXAZOLE-TRIMETHOPRIM [Concomitant]
     Active Substance: SULFAMETHOXAZOLE\TRIMETHOPRIM
  3. CARVEDILOL. [Concomitant]
     Active Substance: CARVEDILOL
  4. HEPARIN [Concomitant]
     Active Substance: HEPARIN SODIUM
  5. BUMETANIDE. [Concomitant]
     Active Substance: BUMETANIDE
  6. LANSOPRAZOLE. [Concomitant]
     Active Substance: LANSOPRAZOLE
  7. TACROLIMUS. [Suspect]
     Active Substance: TACROLIMUS
     Route: 048
  8. AMLODIPINE [Concomitant]
     Active Substance: AMLODIPINE BESYLATE
  9. FUROSEMIDE. [Concomitant]
     Active Substance: FUROSEMIDE

REACTIONS (4)
  - Pneumonia [None]
  - Dyspnoea [None]
  - Candida infection [None]
  - Respiratory distress [None]

NARRATIVE: CASE EVENT DATE: 20150327
